FAERS Safety Report 23217924 (Version 1)
Quarter: 2023Q4

REPORT INFORMATION
  Report Type: Spontaneous
  Country: AT (occurrence: AT)
  Receive Date: 20231122
  Receipt Date: 20231122
  Transmission Date: 20240110
  Serious: Yes (Other)
  Sender: FDA-Public Use
  Company Number: AT-002147023-NVSC2023AT244347

PATIENT

DRUGS (1)
  1. RUXOLITINIB [Suspect]
     Active Substance: RUXOLITINIB
     Indication: Acute graft versus host disease
     Dosage: UNK
     Route: 065

REACTIONS (5)
  - Off label use [Unknown]
  - Disease progression [Unknown]
  - Drug ineffective [Unknown]
  - Thrombocytopenia [Unknown]
  - Cytomegalovirus infection reactivation [Unknown]
